FAERS Safety Report 15115349 (Version 2)
Quarter: 2018Q3

REPORT INFORMATION
  Report Type: Spontaneous
  Country: JP (occurrence: JP)
  Receive Date: 20180706
  Receipt Date: 20180802
  Transmission Date: 20181010
  Serious: Yes (Hospitalization)
  Sender: FDA-Public Use
  Company Number: JP-ABBVIE-18K-087-2411048-00

PATIENT
  Age: 82 Year
  Sex: Female

DRUGS (3)
  1. HUMIRA [Suspect]
     Active Substance: ADALIMUMAB
     Route: 058
     Dates: start: 20180620, end: 20180629
  2. CALCIPOTRIOL COMP [Concomitant]
     Indication: DERMATITIS PSORIASIFORM
     Route: 062
     Dates: start: 20180409
  3. HUMIRA [Suspect]
     Active Substance: ADALIMUMAB
     Indication: PSORIATIC ARTHROPATHY
     Route: 058
     Dates: start: 20180606, end: 201806

REACTIONS (10)
  - Weight decreased [Unknown]
  - Blood pressure decreased [Unknown]
  - Decreased appetite [Recovering/Resolving]
  - Heat illness [Unknown]
  - Vomiting [Unknown]
  - Insomnia [Unknown]
  - Palpitations [Unknown]
  - Dehydration [Recovering/Resolving]
  - Malaise [Recovering/Resolving]
  - Renal disorder [Recovered/Resolved]

NARRATIVE: CASE EVENT DATE: 2018
